FAERS Safety Report 15598700 (Version 1)
Quarter: 2018Q4

REPORT INFORMATION
  Report Type: Report from Study
  Country: None (occurrence: US)
  Receive Date: 20181108
  Receipt Date: 20181108
  Transmission Date: 20190205
  Serious: Yes (Other)
  Sender: FDA-Public Use
  Company Number: US-ABBVIE-18S-163-2470616-00

PATIENT
  Sex: Male
  Weight: 158.9 kg

DRUGS (4)
  1. ANDROGEL [Suspect]
     Active Substance: TESTOSTERONE
     Dosage: 3 PUMPS / DAY
     Route: 061
     Dates: start: 2015, end: 2018
  2. ANDROGEL [Suspect]
     Active Substance: TESTOSTERONE
     Dosage: 2 PUMPS A DAY
     Route: 061
     Dates: start: 2015, end: 2015
  3. ANDROGEL [Suspect]
     Active Substance: TESTOSTERONE
     Indication: BLOOD TESTOSTERONE DECREASED
     Dosage: 4 PUMPS/DAY
     Route: 061
     Dates: start: 2015
  4. ATORVASTATIN [Concomitant]
     Active Substance: ATORVASTATIN
     Indication: BLOOD CHOLESTEROL

REACTIONS (5)
  - Off label use [Unknown]
  - Blood testosterone abnormal [Recovered/Resolved]
  - Sinusitis [Recovered/Resolved]
  - Exostosis [Recovered/Resolved]
  - Ankle operation [Unknown]

NARRATIVE: CASE EVENT DATE: 2015
